FAERS Safety Report 6720039-0 (Version None)
Quarter: 2010Q2

REPORT INFORMATION
  Report Type: 
  Country: None (occurrence: None)
  Receive Date: 20100506
  Receipt Date: 20100430
  Transmission Date: 20101027
  Serious: Yes (Hospitalization)
  Sender: FDA-Public Use
  Company Number: 005234

PATIENT
  Sex: Male
  Weight: 82 kg

DRUGS (1)
  1. CERTOLIZUMAB PEGOL (CERTOLIZUMAB PEGOL) [Suspect]
     Indication: RHEUMATOID ARTHRITIS
     Dosage: EVERY TWO WEEKS - TOTAL 7 DOSES SUBCUTANEOUS
     Route: 058
     Dates: start: 20091015, end: 20091215

REACTIONS (3)
  - DIVERTICULITIS [None]
  - PANCREATITIS [None]
  - SEPSIS [None]
